FAERS Safety Report 5079035-4 (Version None)
Quarter: 2006Q3

REPORT INFORMATION
  Report Type: 
  Country: None (occurrence: None)
  Receive Date: 20060814
  Receipt Date: 20050811
  Transmission Date: 20061208
  Serious: Yes (Other)
  Sender: FDA-Public Use
  Company Number: FR-BRISTOL-MYERS SQUIBB COMPANY-13075668

PATIENT
  Age: 26 Year
  Sex: Female
  Weight: 89 kg

DRUGS (3)
  1. ABILIFY [Suspect]
     Indication: SCHIZOPHRENIA
     Route: 048
     Dates: start: 20050406, end: 20050810
  2. ATARAX [Suspect]
     Indication: ANXIETY
     Route: 048
     Dates: start: 20040419
  3. LEPTICUR [Suspect]
     Route: 048
     Dates: start: 20050406, end: 20050408

REACTIONS (2)
  - PHOTOSENSITIVITY REACTION [None]
  - RASH PUSTULAR [None]
